FAERS Safety Report 5833369-1 (Version None)
Quarter: 2008Q3

REPORT INFORMATION
  Report Type: 
  Country: None (occurrence: None)
  Receive Date: 20080805
  Receipt Date: 20080728
  Transmission Date: 20090109
  Serious: Yes (Hospitalization, Disabling, Other)
  Sender: FDA-Public Use
  Company Number: PHRM2008FR00646

PATIENT
  Sex: Female
  Weight: 70 kg

DRUGS (6)
  1. STALEVO 100 [Suspect]
     Indication: PARKINSON'S DISEASE
     Dosage: 600/350/87.5 MG/DAY
     Route: 048
     Dates: start: 20070701
  2. MODOPAR [Concomitant]
     Indication: PARKINSON'S DISEASE
     Dosage: 100/25 MG/DAY
     Route: 048
  3. FLUDEX [Concomitant]
     Dosage: 1.5MG DAILY
  4. COZAAR [Concomitant]
     Dosage: 100MG DAILY
  5. IKOREL [Concomitant]
     Dosage: 2 DF DAILY
  6. NEBILOX [Concomitant]
     Dosage: 5 MG, QD

REACTIONS (2)
  - OEDEMA PERIPHERAL [None]
  - VENOUS THROMBOSIS [None]
